FAERS Safety Report 20792183 (Version 1)
Quarter: 2022Q2

REPORT INFORMATION
  Report Type: Spontaneous
  Country: None (occurrence: AU)
  Receive Date: 20220505
  Receipt Date: 20220505
  Transmission Date: 20220721
  Serious: Yes (Other)
  Sender: FDA-Public Use
  Company Number: AU-Canton Laboratories, LLC-2128517

PATIENT
  Sex: Female

DRUGS (3)
  1. NAPROSYN [Suspect]
     Active Substance: NAPROXEN
     Indication: Product used for unknown indication
  2. VALIUM [Suspect]
     Active Substance: DIAZEPAM
     Dates: start: 2012, end: 2013
  3. ACETAMINOPHEN\CODEINE PHOSPHATE [Suspect]
     Active Substance: ACETAMINOPHEN\CODEINE PHOSPHATE

REACTIONS (4)
  - Drug dependence [Unknown]
  - Panic attack [Unknown]
  - Intentional product misuse [Unknown]
  - Product use issue [Unknown]
